FAERS Safety Report 11870029 (Version 1)
Quarter: 2015Q4

REPORT INFORMATION
  Report Type: Spontaneous
  Country: BR (occurrence: BR)
  Receive Date: 20151228
  Receipt Date: 20151228
  Transmission Date: 20160305
  Serious: Yes (Hospitalization)
  Sender: FDA-Public Use
  Company Number: BR-TORRENT-00003257

PATIENT
  Sex: Male

DRUGS (4)
  1. LASIX [Concomitant]
     Active Substance: FUROSEMIDE
     Indication: PRODUCT USED FOR UNKNOWN INDICATION
     Dosage: DOSE NUMBER IS UNKNOWN/ NUMBER OF UNITS IN INTERVAL IS UNKNOWN/ ORAL
     Route: 048
  2. TILATIL [Concomitant]
     Active Substance: TENOXICAM
     Indication: PAIN
     Dosage: DOSE NUMBER IS UNKNOWN/ NUMBER OF UNITS IN INTERVAL IS UNKNOWN/ ORAL
     Route: 048
     Dates: start: 201511
  3. TORL?S [Suspect]
     Active Substance: LOSARTAN POTASSIUM
     Indication: HYPERTENSION
     Dosage: NUMBER OF UNITS IN INTERVAL IS UNKNOWN/ ORAL
     Route: 048
  4. ANCORON [Concomitant]
     Active Substance: AMIODARONE HYDROCHLORIDE
     Indication: PRODUCT USED FOR UNKNOWN INDICATION
     Dosage: DOSE NUMBER IS UNKNOWN/ NUMBER OF UNITS IN INTERVAL IS UNKNOWN/ ORAL
     Route: 048

REACTIONS (6)
  - Peripheral swelling [Not Recovered/Not Resolved]
  - Cardiovascular disorder [None]
  - Skin wound [Recovering/Resolving]
  - Wound haemorrhage [None]
  - Pain in extremity [Not Recovered/Not Resolved]
  - Pain [None]

NARRATIVE: CASE EVENT DATE: 201511
